FAERS Safety Report 7744081-6 (Version None)
Quarter: 2011Q3

REPORT INFORMATION
  Report Type: 
  Country: None (occurrence: None)
  Receive Date: 20110909
  Receipt Date: 20110909
  Transmission Date: 20111222
  Serious: Yes (Life-Threatening, Hospitalization)
  Sender: FDA-Public Use
  Company Number: None

PATIENT
  Sex: Female
  Weight: 61.2356 kg

DRUGS (1)
  1. CARBAMAZEPINE [Suspect]
     Indication: AFFECTIVE DISORDER
     Dates: start: 20090301

REACTIONS (10)
  - HEADACHE [None]
  - BLOOD PRESSURE FLUCTUATION [None]
  - BACK PAIN [None]
  - HEART RATE DECREASED [None]
  - BODY TEMPERATURE DECREASED [None]
  - NAUSEA [None]
  - VOMITING [None]
  - BLOOD SODIUM DECREASED [None]
  - CHILLS [None]
  - BLOOD PRESSURE INCREASED [None]
